FAERS Safety Report 9832054 (Version 1)
Quarter: 2014Q1

REPORT INFORMATION
  Report Type: Spontaneous
  Country: IR (occurrence: IR)
  Receive Date: 20140121
  Receipt Date: 20140121
  Transmission Date: 20141002
  Serious: Yes (Hospitalization)
  Sender: FDA-Public Use
  Company Number: IR-PFIZER INC-2014016852

PATIENT
  Age: 23 Year
  Sex: Female

DRUGS (2)
  1. METRONIDAZOLE [Suspect]
     Indication: DIARRHOEA
     Dosage: 750 MG, 3X/DAY
     Route: 048
  2. METRONIDAZOLE [Suspect]
     Indication: BLASTOCYSTIS INFECTION

REACTIONS (1)
  - Deafness neurosensory [Recovering/Resolving]
